FAERS Safety Report 6972299-9 (Version None)
Quarter: 2010Q3

REPORT INFORMATION
  Report Type: 
  Country: None (occurrence: None)
  Receive Date: 20100909
  Receipt Date: 20100826
  Transmission Date: 20110219
  Serious: Yes (Other)
  Sender: FDA-Public Use
  Company Number: PHFR2010GB02952

PATIENT
  Sex: Female

DRUGS (1)
  1. ZOLEDRONIC [Suspect]

REACTIONS (1)
  - SPINAL FRACTURE [None]
